FAERS Safety Report 7141178-9 (Version None)
Quarter: 2010Q4

REPORT INFORMATION
  Report Type: 
  Country: None (occurrence: None)
  Receive Date: 20101202
  Receipt Date: 20101202
  Transmission Date: 20110411
  Serious: Yes (Other)
  Sender: FDA-Public Use
  Company Number: None

PATIENT
  Sex: Female
  Weight: 78.0187 kg

DRUGS (2)
  1. OXYCONTIN [Suspect]
     Dosage: 80 MG OP TWICE A DAY
     Dates: start: 20101004
  2. OXYCONTIN [Suspect]
     Dosage: 80 MG OP TWICE A DAY
     Dates: start: 20101120

REACTIONS (3)
  - DYSPEPSIA [None]
  - INADEQUATE ANALGESIA [None]
  - PRODUCT FORMULATION ISSUE [None]
